FAERS Safety Report 8386533-4 (Version None)
Quarter: 2012Q2

REPORT INFORMATION
  Report Type: 
  Country: None (occurrence: None)
  Receive Date: 20120525
  Receipt Date: 20110516
  Transmission Date: 20120825
  Serious: No
  Sender: FDA-Public Use
  Company Number: US-GLAXOSMITHKLINE-A0927539A

PATIENT
  Age: 5 Year
  Sex: Female

DRUGS (3)
  1. CETIRIZINE HYDROCHLORIDE [Concomitant]
  2. UNKNOWN MEDICATION [Concomitant]
  3. VERAMYST [Suspect]
     Indication: RHINITIS ALLERGIC
     Dosage: 1PUFF PER DAY
     Route: 045
     Dates: start: 20110401

REACTIONS (1)
  - DRUG INEFFECTIVE [None]
